FAERS Safety Report 13628620 (Version 2)
Quarter: 2017Q2

REPORT INFORMATION
  Report Type: Spontaneous
  Country: US (occurrence: US)
  Receive Date: 20170608
  Receipt Date: 20170621
  Transmission Date: 20170830
  Serious: Yes (Other)
  Sender: FDA-Public Use
  Company Number: US-PFIZER INC-2017243852

PATIENT
  Age: 32 Year
  Sex: Male

DRUGS (2)
  1. CLOZAPINE. [Interacting]
     Active Substance: CLOZAPINE
     Dosage: 800 MG, DAILY (IN THREE DIVIDED DOSES)
  2. ERYTHROMYCIN. [Suspect]
     Active Substance: ERYTHROMYCIN
     Indication: PHARYNGITIS
     Dosage: 250 MG, 4X/DAY (QID, REGIMEN FOR 10 DAYS)

REACTIONS (4)
  - Drug level increased [Unknown]
  - Postictal state [Unknown]
  - Generalised tonic-clonic seizure [Unknown]
  - Drug interaction [Unknown]
